FAERS Safety Report 6140889-1 (Version None)
Quarter: 2009Q2

REPORT INFORMATION
  Report Type: 
  Country: None (occurrence: None)
  Receive Date: 20090402
  Receipt Date: 20080425
  Transmission Date: 20091009
  Serious: No
  Sender: FDA-Public Use
  Company Number: US-KINGPHARMUSA00001-K200800499

PATIENT
  Age: 73 Year
  Sex: Male

DRUGS (5)
  1. SKELAXIN [Suspect]
     Indication: PAIN IN EXTREMITY
     Dosage: 800 MG, QID
     Route: 048
     Dates: start: 20080422
  2. ROXICET [Concomitant]
     Indication: PAIN IN EXTREMITY
     Route: 048
  3. UNSPECIFIED MEDICATION FOR PROSTATE [Concomitant]
     Route: 048
  4. UNSPECIFIED MEDICATION FOR CHOLESTEROL [Concomitant]
     Indication: BLOOD CHOLESTEROL INCREASED
     Route: 048
  5. GABAPENTIN [Concomitant]
     Indication: PAIN IN EXTREMITY
     Route: 048

REACTIONS (2)
  - DRUG INEFFECTIVE [None]
  - SLEEP DISORDER [None]
